FAERS Safety Report 24965989 (Version 1)
Quarter: 2025Q1

REPORT INFORMATION
  Report Type: Spontaneous
  Country: GB (occurrence: GB)
  Receive Date: 20250213
  Receipt Date: 20250213
  Transmission Date: 20250408
  Serious: Yes (Hospitalization)
  Sender: TAKEDA
  Company Number: GB-TAKEDA-2025TUS013979

PATIENT

DRUGS (2)
  1. LIVTENCITY [Suspect]
     Active Substance: MARIBAVIR
     Indication: Cytomegalovirus infection
  2. FOSCARNET [Suspect]
     Active Substance: FOSCARNET
     Indication: Product used for unknown indication

REACTIONS (2)
  - Viral load increased [Unknown]
  - Drug ineffective [Unknown]
